FAERS Safety Report 19210455 (Version 2)
Quarter: 2021Q2

REPORT INFORMATION
  Report Type: Report from Study
  Country: NZ (occurrence: NZ)
  Receive Date: 20210504
  Receipt Date: 20210504
  Transmission Date: 20210717
  Serious: Yes (Death)
  Sender: FDA-Public Use
  Company Number: NZ-PFIZER INC-2021483510

PATIENT
  Sex: Male

DRUGS (3)
  1. ETOPOSIDE. [Concomitant]
     Active Substance: ETOPOSIDE
     Indication: TESTICULAR SEMINOMA (PURE) STAGE I
     Dosage: UNK, CYCLIC (FOUR CYCLES)
  2. CISPLATIN. [Concomitant]
     Active Substance: CISPLATIN
     Indication: TESTICULAR SEMINOMA (PURE) STAGE I
     Dosage: UNK, CYCLIC (4 CYCLES)
  3. BLEOMYCIN SULFATE [Suspect]
     Active Substance: BLEOMYCIN SULFATE
     Indication: TESTICULAR SEMINOMA (PURE) STAGE I
     Dosage: UNK, CYCLIC (4 CYCLES)

REACTIONS (2)
  - Pulmonary embolism [Fatal]
  - Pneumonitis [Fatal]
